FAERS Safety Report 5959122-6 (Version None)
Quarter: 2008Q4

REPORT INFORMATION
  Report Type: 
  Country: None (occurrence: None)
  Receive Date: 20081120
  Receipt Date: 20080218
  Transmission Date: 20090506
  Serious: No
  Sender: FDA-Public Use
  Company Number: A0702488A

PATIENT
  Sex: Male

DRUGS (2)
  1. BUPROPION HYDROCHLORIDE [Suspect]
     Indication: DEPRESSION
     Dosage: 150MG PER DAY
     Route: 048
     Dates: start: 20071207, end: 20071201
  2. ANTI-PSYCHOTIC MEDICATION [Concomitant]

REACTIONS (5)
  - DYSPEPSIA [None]
  - ENERGY INCREASED [None]
  - MALAISE [None]
  - PRODUCT QUALITY ISSUE [None]
  - SEDATION [None]
